FAERS Safety Report 20136676 (Version 1)
Quarter: 2021Q4

REPORT INFORMATION
  Report Type: Spontaneous
  Country: US (occurrence: US)
  Receive Date: 20211201
  Receipt Date: 20211201
  Transmission Date: 20220303
  Serious: Yes (Hospitalization)
  Sender: FDA-Public Use
  Company Number: US-MALLINCKRODT-T202105286

PATIENT
  Sex: Male

DRUGS (5)
  1. H.P. ACTHAR [Suspect]
     Active Substance: CORTICOTROPIN
     Indication: Epilepsy
     Dosage: 0.4 ML IN THE MORNING AND 0.35 ML IN THE EVENING FOR 14 DAYS
     Route: 030
     Dates: start: 202110, end: 2021
  2. H.P. ACTHAR [Suspect]
     Active Substance: CORTICOTROPIN
     Dosage: 0.4 ML AM FOR 7 DAYS
     Route: 030
     Dates: start: 2021, end: 2021
  3. H.P. ACTHAR [Suspect]
     Active Substance: CORTICOTROPIN
     Dosage: 0.3 ML IN AM FOR 3 DAYS
     Route: 030
     Dates: start: 2021, end: 2021
  4. H.P. ACTHAR [Suspect]
     Active Substance: CORTICOTROPIN
     Dosage: 0.2 ML IN AM FOR 3 DAYS
     Dates: start: 2021, end: 2021
  5. H.P. ACTHAR [Suspect]
     Active Substance: CORTICOTROPIN
     Dosage: 0.2 ML EVERY OTHER DAY FOR 3 DOSES
     Dates: start: 2021

REACTIONS (2)
  - Hospitalisation [Unknown]
  - Product use in unapproved indication [Not Recovered/Not Resolved]

NARRATIVE: CASE EVENT DATE: 20210101
